FAERS Safety Report 8228538-X (Version None)
Quarter: 2012Q1

REPORT INFORMATION
  Report Type: 
  Country: None (occurrence: None)
  Receive Date: 20120322
  Receipt Date: 20120321
  Transmission Date: 20120608
  Serious: Yes (Hospitalization)
  Sender: FDA-Public Use
  Company Number: DE-GLAXOSMITHKLINE-D0074976A

PATIENT
  Sex: Female

DRUGS (1)
  1. ALLI [Suspect]
     Route: 048

REACTIONS (7)
  - LOSS OF CONSCIOUSNESS [None]
  - FEAR [None]
  - TACHYCARDIA [None]
  - PANIC ATTACK [None]
  - SYNCOPE [None]
  - HYPERSENSITIVITY [None]
  - FEELING ABNORMAL [None]
